FAERS Safety Report 9193862 (Version 1)
Quarter: 2013Q1

REPORT INFORMATION
  Report Type: Spontaneous
  Country: GB (occurrence: GB)
  Receive Date: 20130327
  Receipt Date: 20130327
  Transmission Date: 20140127
  Serious: Yes (Life-Threatening, Hospitalization, Disabling, Other)
  Sender: FDA-Public Use
  Company Number: GB-TEVA-393158ISR

PATIENT
  Age: 85 Year
  Sex: Female
  Weight: 48 kg

DRUGS (13)
  1. TRIMETHOPRIM [Suspect]
     Indication: URINARY TRACT INFECTION
     Route: 048
     Dates: start: 20130206, end: 20130207
  2. ADCAL-D3 [Concomitant]
  3. ASPIRIN [Concomitant]
  4. DOCUSATE [Concomitant]
  5. LEVOTHYROXINE [Concomitant]
  6. PARACETAMOL [Concomitant]
  7. LAXIDO [Concomitant]
  8. LACTULOSE SOLUTION [Concomitant]
  9. CODEINE [Concomitant]
  10. PIRITON [Concomitant]
  11. ZOPICLONE [Concomitant]
  12. SIMVASTATIN [Concomitant]
  13. CIPROFLOXACIN [Concomitant]

REACTIONS (4)
  - Toxic epidermal necrolysis [Recovering/Resolving]
  - Immunodeficiency [Unknown]
  - Pneumonia [Unknown]
  - Documented hypersensitivity to administered drug [Unknown]
